FAERS Safety Report 19856409 (Version 5)
Quarter: 2022Q1

REPORT INFORMATION
  Report Type: Report from Study
  Country: US (occurrence: US)
  Receive Date: 20210920
  Receipt Date: 20220201
  Transmission Date: 20220423
  Serious: Yes (Other)
  Sender: FDA-Public Use
  Company Number: US-NOVARTISTESTPH-NVSC2021US212623

PATIENT
  Age: 73 Year
  Sex: Female

DRUGS (3)
  1. BEOVU [Suspect]
     Active Substance: BROLUCIZUMAB-DBLL
     Indication: Neovascular age-related macular degeneration
     Dosage: UNK
     Route: 047
     Dates: start: 20210909
  2. BEOVU [Suspect]
     Active Substance: BROLUCIZUMAB-DBLL
     Dosage: UNK
     Route: 047
     Dates: start: 20211011
  3. BEOVU [Suspect]
     Active Substance: BROLUCIZUMAB-DBLL
     Dosage: UNK (3RD SHOT)
     Route: 047
     Dates: start: 20211108

REACTIONS (11)
  - Keratic precipitates [Recovering/Resolving]
  - Eye inflammation [Recovered/Resolved]
  - Vitreous floaters [Recovering/Resolving]
  - Vision blurred [Unknown]
  - Anterior chamber flare [Unknown]
  - Rhinorrhoea [Recovering/Resolving]
  - Anxiety [Recovering/Resolving]
  - Anterior chamber cell [Recovered/Resolved]
  - Visual impairment [Unknown]
  - Eye pain [Recovering/Resolving]
  - Lacrimation increased [Recovering/Resolving]

NARRATIVE: CASE EVENT DATE: 20211112
